FAERS Safety Report 7321510-3 (Version None)
Quarter: 2011Q1

REPORT INFORMATION
  Report Type: 
  Country: None (occurrence: None)
  Receive Date: 20110228
  Receipt Date: 20110216
  Transmission Date: 20110831
  Serious: Yes (Other)
  Sender: FDA-Public Use
  Company Number: NL-MEDIMMUNE-MEDI-0012664

PATIENT
  Sex: Male

DRUGS (6)
  1. RANITIDINE HYDROCHLORIDE [Concomitant]
  2. SYNAGIS [Suspect]
     Route: 030
     Dates: start: 20101104, end: 20101104
  3. SYNAGIS [Suspect]
     Route: 030
     Dates: start: 20101203, end: 20101203
  4. SYNAGIS [Suspect]
     Route: 030
     Dates: start: 20101228, end: 20101228
  5. DOMPERIDONE [Concomitant]
  6. SYNAGIS [Suspect]
     Route: 030
     Dates: start: 20101004, end: 20101004

REACTIONS (4)
  - CONVULSION [None]
  - NASOPHARYNGITIS [None]
  - APNOEA [None]
  - CARDIAC DISORDER [None]
